FAERS Safety Report 13458185 (Version 1)
Quarter: 2017Q2

REPORT INFORMATION
  Report Type: Spontaneous
  Country: HR (occurrence: HR)
  Receive Date: 20170419
  Receipt Date: 20170419
  Transmission Date: 20170830
  Serious: Yes (Life-Threatening, Hospitalization)
  Sender: FDA-Public Use
  Company Number: PHHY2017HR058131

PATIENT
  Age: 13 Year
  Sex: Female
  Weight: 58 kg

DRUGS (3)
  1. TRILEPTAL [Suspect]
     Active Substance: OXCARBAZEPINE
     Indication: EPILEPSY
     Dosage: 300 MG, BID
     Route: 048
     Dates: end: 20170327
  2. TRILEPTAL [Suspect]
     Active Substance: OXCARBAZEPINE
     Dosage: 6000 MG, QD (20 TABLETS OF 300 MG)
     Route: 048
     Dates: start: 20170331, end: 20170331
  3. TRILEPTAL [Suspect]
     Active Substance: OXCARBAZEPINE
     Dosage: 300 MG, QD
     Route: 048
     Dates: start: 20170327, end: 20170331

REACTIONS (2)
  - Suicide attempt [Recovering/Resolving]
  - Intentional overdose [Recovering/Resolving]

NARRATIVE: CASE EVENT DATE: 20170331
